FAERS Safety Report 20621510 (Version 1)
Quarter: 2022Q1

REPORT INFORMATION
  Report Type: Spontaneous
  Country: US (occurrence: US)
  Receive Date: 20220322
  Receipt Date: 20220322
  Transmission Date: 20220424
  Serious: No
  Sender: FDA-Public Use
  Company Number: US-ALLERGAN-2123440US

PATIENT
  Age: 9 Decade
  Sex: Female

DRUGS (1)
  1. LATISSE [Suspect]
     Active Substance: BIMATOPROST
     Indication: Growth of eyelashes
     Dosage: 1 GTT, ONCE OR TWICE A WEEK
     Route: 061

REACTIONS (4)
  - Inappropriate schedule of product administration [Unknown]
  - Trichiasis [Recovering/Resolving]
  - Growth of eyelashes [Not Recovered/Not Resolved]
  - Product quality issue [Unknown]
